FAERS Safety Report 9271378 (Version 2)
Quarter: 2013Q2

REPORT INFORMATION
  Report Type: Spontaneous
  Country: AT (occurrence: AT)
  Receive Date: 20130506
  Receipt Date: 20130521
  Transmission Date: 20140414
  Serious: Yes (Death, Hospitalization, Other)
  Sender: FDA-Public Use
  Company Number: AT-JNJFOC-20130417216

PATIENT
  Age: 84 Year
  Sex: Female
  Weight: 48 kg

DRUGS (12)
  1. XARELTO [Suspect]
     Indication: ATRIAL FIBRILLATION
     Route: 048
     Dates: start: 20130114, end: 20130324
  2. XARELTO [Suspect]
     Indication: CEREBROVASCULAR ACCIDENT PROPHYLAXIS
     Route: 048
     Dates: start: 20130114, end: 20130324
  3. SIMVASTATIN [Concomitant]
     Route: 065
  4. LEVOCETIRIZINE [Concomitant]
     Route: 065
  5. DOXAZOSIN [Concomitant]
     Route: 065
  6. KORODIN [Concomitant]
     Route: 065
  7. TRITTICO [Concomitant]
     Route: 065
  8. DIGIMERCK [Concomitant]
     Route: 065
  9. OLMETEC [Concomitant]
     Route: 066
  10. HYPROMELLOSE [Concomitant]
     Route: 065
  11. ZALDIAR [Concomitant]
     Route: 065
  12. HYDROCHLOROTHIAZIDE AND OLMESARTAN [Concomitant]
     Route: 065

REACTIONS (7)
  - Cerebral haemorrhage [Fatal]
  - Bronchopneumonia [Unknown]
  - Pulmonary haemorrhage [Unknown]
  - Reversible ischaemic neurological deficit [Recovered/Resolved]
  - Aspiration [Unknown]
  - Vertigo [Unknown]
  - Aphasia [Unknown]
